FAERS Safety Report 21550823 (Version 1)
Quarter: 2022Q4

REPORT INFORMATION
  Report Type: Spontaneous
  Country: HR (occurrence: HR)
  Receive Date: 20221103
  Receipt Date: 20221103
  Transmission Date: 20230113
  Serious: Yes (Death, Hospitalization, Other)
  Sender: FDA-Public Use
  Company Number: None

PATIENT
  Age: 87 Year
  Sex: Female

DRUGS (4)
  1. PRADAXA [Suspect]
     Active Substance: DABIGATRAN ETEXILATE MESYLATE
     Indication: Atrial fibrillation
     Dosage: UNK
     Route: 048
     Dates: start: 201611, end: 20220925
  2. Kalinor [Concomitant]
     Indication: Product used for unknown indication
     Dosage: 2,057G CITRIC ACID + 2,00G POTASSIUM BICARBONATE + 2,17 G POTASSIUM CITRATE
     Route: 048
  3. ATENOLOL [Concomitant]
     Active Substance: ATENOLOL
     Indication: Product used for unknown indication
     Route: 048
  4. FUROSEMIDE [Concomitant]
     Active Substance: FUROSEMIDE
     Indication: Product used for unknown indication
     Dosage: UNK

REACTIONS (6)
  - Loss of consciousness [Fatal]
  - Subdural haematoma [Fatal]
  - Coma [Fatal]
  - Coagulation time prolonged [Fatal]
  - Multiple organ dysfunction syndrome [Fatal]
  - Cerebral haematoma [Fatal]

NARRATIVE: CASE EVENT DATE: 20220925
